FAERS Safety Report 8711206 (Version 2)
Quarter: 2012Q4

REPORT INFORMATION
  Report Type: 
  Country: US (occurrence: US)
  Receive Date: 20120807
  Receipt Date: 20121204
  Transmission Date: 20130627
  Serious: Yes (Hospitalization)
  Sender: FDA-Public Use
  Company Number: US-B.I. PHARMACEUTICALS,INC./RIDGEFIELD-2012-BP-17257BP

PATIENT
  Age: 76 None
  Sex: Female

DRUGS (1)
  1. PRADAXA [Suspect]
     Indication: ATRIAL FIBRILLATION
     Route: 048
     Dates: start: 201106, end: 20120415

REACTIONS (2)
  - Cerebrovascular accident [Recovered/Resolved with Sequelae]
  - Thrombosis [Recovered/Resolved with Sequelae]
